FAERS Safety Report 13784488 (Version 1)
Quarter: 2017Q3

REPORT INFORMATION
  Report Type: Spontaneous
  Country: US (occurrence: US)
  Receive Date: 20170724
  Receipt Date: 20170724
  Transmission Date: 20171127
  Serious: No
  Sender: FDA-Public Use
  Company Number: US-IMPAX LABORATORIES, INC-2017-IPXL-01194

PATIENT
  Age: 70 Year
  Sex: Female
  Weight: 60 kg

DRUGS (3)
  1. RYTARY [Suspect]
     Active Substance: CARBIDOPA\LEVODOPA
     Indication: PARKINSON^S DISEASE
     Dosage: 23.75/95 MG, 1 DF, 3 /DAY
     Route: 048
     Dates: start: 201704, end: 201704
  2. RYTARY [Suspect]
     Active Substance: CARBIDOPA\LEVODOPA
     Dosage: 23.75/95 MG, 3 DF, 3 /DAY
     Route: 048
     Dates: start: 201704, end: 201704
  3. SELEGILINE [Concomitant]
     Active Substance: SELEGILINE
     Indication: PRODUCT USED FOR UNKNOWN INDICATION
     Dosage: 5 MG TWO TIMES A DAY
     Route: 065

REACTIONS (12)
  - Joint lock [Recovering/Resolving]
  - Nightmare [Unknown]
  - Accidental underdose [Unknown]
  - Crying [Recovering/Resolving]
  - Memory impairment [Unknown]
  - Tremor [Not Recovered/Not Resolved]
  - Hallucination [Unknown]
  - Gait disturbance [Recovering/Resolving]
  - Depression [Recovering/Resolving]
  - Anxiety [Recovered/Resolved]
  - Pharyngeal oedema [Recovering/Resolving]
  - Muscular weakness [Recovered/Resolved]

NARRATIVE: CASE EVENT DATE: 201704
